FAERS Safety Report 10637841 (Version 1)
Quarter: 2014Q4

REPORT INFORMATION
  Report Type: Spontaneous
  Country: CZ (occurrence: CZ)
  Receive Date: 20141208
  Receipt Date: 20141208
  Transmission Date: 20150529
  Serious: Yes (Other)
  Sender: FDA-Public Use
  Company Number: CZ-MYLANLABS-2014M1013035

PATIENT

DRUGS (12)
  1. VINCRISTINE [Concomitant]
     Active Substance: VINCRISTINE
     Indication: CASTLEMAN^S DISEASE
     Dosage: 2MG ON DAY 1, CYCLES 1-3
     Route: 042
  2. CYCLOPHOSPHAMIDE. [Concomitant]
     Active Substance: CYCLOPHOSPHAMIDE
     Dosage: 20MG ON DAYS 1-2 AND 15-16, CYCLES 1-2.5
     Route: 048
  3. DEXAMETHASONE. [Suspect]
     Active Substance: DEXAMETHASONE
     Indication: CASTLEMAN^S DISEASE
     Dosage: 20MG ON DAYS 1-4 AND 15-18, CYCLES 1-10
     Route: 048
  4. RITUXIMAB [Concomitant]
     Active Substance: RITUXIMAB
     Indication: CASTLEMAN^S DISEASE
     Dosage: 375MG/M2 CYCLES 1-3
     Route: 065
  5. CYCLOPHOSPHAMIDE. [Concomitant]
     Active Substance: CYCLOPHOSPHAMIDE
     Indication: CASTLEMAN^S DISEASE
     Dosage: 750MG/M2 CYCLES 1-3
     Route: 065
  6. PREDNISONE. [Suspect]
     Active Substance: PREDNISONE
     Indication: CASTLEMAN^S DISEASE
     Dosage: 100MG ON DAYS 1-5, CYCLES 1-3
     Route: 048
  7. DOXORUBICIN [Concomitant]
     Active Substance: DOXORUBICIN
     Indication: CASTLEMAN^S DISEASE
     Dosage: 50MG/M2 CYCLES 1-3
     Route: 065
  8. TOCILIZUMAB [Concomitant]
     Active Substance: TOCILIZUMAB
     Indication: CASTLEMAN^S DISEASE
     Dosage: 400MG EVERY 2 WEEKS
     Route: 042
  9. THALIDOMIDE [Suspect]
     Active Substance: THALIDOMIDE
     Dosage: 100MG ON DAYS 1-28, CYCLES 1-2.5
     Route: 048
  10. DEXAMETHASONE. [Suspect]
     Active Substance: DEXAMETHASONE
     Dosage: 20MG ON DAYS 1-2 AND 15-16, CYCLES 1-2.5
     Route: 048
  11. THALIDOMIDE [Suspect]
     Active Substance: THALIDOMIDE
     Indication: CASTLEMAN^S DISEASE
     Dosage: 100-200MG ON DAYS 1-28, CYCLES 1-10
     Route: 048
  12. CYCLOPHOSPHAMIDE. [Concomitant]
     Active Substance: CYCLOPHOSPHAMIDE
     Dosage: 50MG, CYCLES 1-10
     Route: 065

REACTIONS (2)
  - Cushing^s syndrome [Unknown]
  - Neuropathy peripheral [Unknown]
